FAERS Safety Report 8800939 (Version 2)
Quarter: 2012Q4

REPORT INFORMATION
  Report Type: Report from Study
  Country: CA (occurrence: CA)
  Receive Date: 20120920
  Receipt Date: 20120925
  Transmission Date: 20130627
  Serious: No
  Sender: FDA-Public Use
  Company Number: CA-ROCHE-1132167

PATIENT
  Age: 54 Year
  Sex: Female
  Weight: 86.26 kg

DRUGS (8)
  1. TOCILIZUMAB [Suspect]
     Indication: RHEUMATOID ARTHRITIS
     Route: 042
     Dates: start: 20100920
  2. TOCILIZUMAB [Suspect]
     Route: 042
     Dates: start: 20101018
  3. TOCILIZUMAB [Suspect]
     Route: 042
     Dates: start: 20110405
  4. TOCILIZUMAB [Suspect]
     Route: 042
     Dates: start: 20110628, end: 20120625
  5. ATENOLOL [Concomitant]
  6. HYDROCHLOROTHIAZIDE [Concomitant]
  7. APO-ENALAPRIL [Concomitant]
     Indication: HYPERTENSION
     Route: 065
     Dates: end: 201209
  8. ARAVA [Concomitant]

REACTIONS (3)
  - Kidney infection [Unknown]
  - Hypertension [Recovered/Resolved]
  - Blood cholesterol increased [Unknown]
